FAERS Safety Report 24307858 (Version 1)
Quarter: 2024Q3

REPORT INFORMATION
  Report Type: Spontaneous
  Country: AU (occurrence: AU)
  Receive Date: 20240911
  Receipt Date: 20240911
  Transmission Date: 20241016
  Serious: Yes (Death, Other)
  Sender: CIPLA
  Company Number: AU-CIPLA LTD.-2024AU09640

PATIENT

DRUGS (1)
  1. LENALIDOMIDE [Suspect]
     Active Substance: LENALIDOMIDE
     Indication: Plasma cell myeloma
     Dosage: UNK
     Route: 065
     Dates: start: 20240620, end: 20240718

REACTIONS (1)
  - Death [Fatal]

NARRATIVE: CASE EVENT DATE: 20240718
